FAERS Safety Report 23436974 (Version 1)
Quarter: 2024Q1

REPORT INFORMATION
  Report Type: Spontaneous
  Country: CA (occurrence: CA)
  Receive Date: 20240124
  Receipt Date: 20240124
  Transmission Date: 20240409
  Serious: Yes (Life-Threatening, Other)
  Sender: FDA-Public Use
  Company Number: CA-SANDOZ-SDZ2024CA007137

PATIENT
  Age: 60 Year
  Sex: Male

DRUGS (1)
  1. HEPARIN SODIUM [Suspect]
     Active Substance: HEPARIN SODIUM
     Indication: Product used for unknown indication
     Dosage: UNK
     Route: 042

REACTIONS (7)
  - Cardioversion [Unknown]
  - Demyelinating polyneuropathy [Unknown]
  - Hypotension [Unknown]
  - Resuscitation [Unknown]
  - Suspected product quality issue [Unknown]
  - Ventricular fibrillation [Unknown]
  - Drug ineffective [Unknown]
